FAERS Safety Report 8093926-1 (Version None)
Quarter: 2012Q1

REPORT INFORMATION
  Report Type: 
  Country: None (occurrence: None)
  Receive Date: 20120130
  Receipt Date: 20120117
  Transmission Date: 20120608
  Serious: Yes (Other)
  Sender: FDA-Public Use
  Company Number: US-ELI_LILLY_AND_COMPANY-US201201006483

PATIENT
  Age: 38 Year
  Sex: Female

DRUGS (2)
  1. ZYPREXA [Suspect]
     Indication: SCHIZOPHRENIA
     Dosage: 17.5 MG, UNK
  2. LUVOX [Concomitant]
     Dosage: UNK, BID
     Dates: end: 20120118

REACTIONS (2)
  - HEART RATE INCREASED [None]
  - SYNCOPE [None]
